FAERS Safety Report 18459247 (Version 2)
Quarter: 2021Q1

REPORT INFORMATION
  Report Type: Spontaneous
  Country: NZ (occurrence: NZ)
  Receive Date: 20201103
  Receipt Date: 20210325
  Transmission Date: 20210419
  Serious: Yes (Death)
  Sender: FDA-Public Use
  Company Number: NZ-MYLANLABS-2020M1092364

PATIENT
  Sex: Male

DRUGS (9)
  1. CLOZARIL [Suspect]
     Active Substance: CLOZAPINE
     Dosage: ONE TABLET IN THE MORNING AND 4 TABLETS AT NIGHT
     Route: 048
     Dates: start: 20040804, end: 20201001
  2. CLOZARIL [Suspect]
     Active Substance: CLOZAPINE
     Dosage: ONE TABLET IN THE MORNING AND 4 TABLETS AT NIGHT
     Route: 048
     Dates: start: 20040804, end: 20201001
  3. PAROXETINE. [Concomitant]
     Active Substance: PAROXETINE
     Indication: DEPRESSION
     Dosage: 1 TAB DAILY
     Route: 048
     Dates: start: 20090804, end: 20201001
  4. BENZATROPINE [Concomitant]
     Active Substance: BENZTROPINE
     Dosage: 1 TABLET DAILY
     Route: 048
  5. ATENOLOL. [Concomitant]
     Active Substance: ATENOLOL
     Indication: BLOOD PRESSURE ABNORMAL
     Dosage: 1 TAB DAILY
     Route: 048
     Dates: start: 20090804, end: 20201001
  6. ATORVASTATIN [Concomitant]
     Active Substance: ATORVASTATIN
     Indication: BLOOD CHOLESTEROL
     Dosage: 1 TAB DAILY
     Route: 048
     Dates: start: 20090804, end: 20201001
  7. LAXSOL [Concomitant]
     Active Substance: DOCUSATE SODIUM\SENNOSIDES A AND B
     Indication: CONSTIPATION
     Dosage: 50/8MG, 2 TABLET AT NIGHT
     Route: 048
     Dates: start: 20090804, end: 20201001
  8. CLOZARIL [Suspect]
     Active Substance: CLOZAPINE
     Indication: SCHIZOPHRENIA
     Dosage: UNK
     Route: 048
     Dates: start: 20030711
  9. EPILIM [Concomitant]
     Active Substance: VALPROATE SODIUM
     Indication: EPILEPSY
     Dosage: 500 MILLIGRAM, 1 BD
     Route: 048
     Dates: start: 20090804, end: 20201001

REACTIONS (1)
  - Neoplasm malignant [Fatal]
